FAERS Safety Report 24101599 (Version 1)
Quarter: 2024Q3

REPORT INFORMATION
  Report Type: Spontaneous
  Country: US (occurrence: US)
  Receive Date: 20240717
  Receipt Date: 20240717
  Transmission Date: 20241017
  Serious: No
  Sender: NOVO NORDISK
  Company Number: US-NOVOPROD-1218004

PATIENT

DRUGS (1)
  1. OZEMPIC [Suspect]
     Active Substance: SEMAGLUTIDE
     Indication: Diabetes mellitus management
     Dosage: 0.25 MG
     Route: 058

REACTIONS (4)
  - Urinary tract infection [Unknown]
  - Vomiting [Unknown]
  - Off label use [Unknown]
  - Product communication issue [Unknown]
